FAERS Safety Report 9000194 (Version 1)
Quarter: 2013Q1

REPORT INFORMATION
  Report Type: Spontaneous
  Country: US (occurrence: US)
  Receive Date: 20130102
  Receipt Date: 20130102
  Transmission Date: 20140127
  Serious: Yes (Other)
  Sender: FDA-Public Use
  Company Number: US-JNJFOC-20121214291

PATIENT
  Age: 47 Year
  Sex: Male
  Weight: 88.91 kg

DRUGS (11)
  1. METHYLPHENIDATE HCL [Suspect]
     Indication: DISTURBANCE IN ATTENTION
     Route: 048
     Dates: start: 20121217
  2. METHYLPHENIDATE HCL [Suspect]
     Indication: DISTURBANCE IN ATTENTION
     Route: 048
     Dates: start: 20121212, end: 20121215
  3. REGULAR INSULIN [Concomitant]
     Indication: DIABETES MELLITUS
     Route: 058
  4. LOSARTAN [Concomitant]
     Indication: HYPERTENSION
     Route: 048
  5. CRESTOR [Concomitant]
     Indication: BLOOD CHOLESTEROL
     Route: 048
  6. LISINOPRIL [Concomitant]
     Indication: HYPERTENSION
     Route: 048
  7. HYDRALAZINE HYDROCHLORIDE [Concomitant]
     Indication: DIURETIC THERAPY
     Route: 048
  8. VITAMIN D [Concomitant]
     Indication: ANAEMIA
     Dosage: 50,000/CAPSULES/50,000/WEEKLY/ORAL
     Route: 048
  9. LEXAPRO [Concomitant]
     Indication: ANTIDEPRESSANT THERAPY
     Dosage: 50,000/CAPSULES/50,000/WEEKLY/ORAL
     Route: 048
  10. ZOLPIDEM [Concomitant]
     Indication: RESTLESSNESS
     Dosage: 50,000/CAPSULES/50,000/WEEKLY/ORAL
     Route: 048
  11. ZOLPIDEM [Concomitant]
     Indication: SLEEP DISORDER
     Dosage: 50,000/CAPSULES/50,000/WEEKLY/ORAL
     Route: 048

REACTIONS (5)
  - Blood glucose increased [Not Recovered/Not Resolved]
  - Weight decreased [Not Recovered/Not Resolved]
  - Nausea [Not Recovered/Not Resolved]
  - Dry mouth [Not Recovered/Not Resolved]
  - Influenza like illness [None]
